FAERS Safety Report 5876998-1 (Version None)
Quarter: 2008Q3

REPORT INFORMATION
  Report Type: 
  Country: None (occurrence: None)
  Receive Date: 20080909
  Receipt Date: 20080909
  Transmission Date: 20090109
  Serious: Yes (Other)
  Sender: FDA-Public Use
  Company Number: None

PATIENT
  Age: 51 Year
  Sex: Female
  Weight: 90.7194 kg

DRUGS (1)
  1. SEROQUEL [Suspect]

REACTIONS (13)
  - ASTHENIA [None]
  - CHILLS [None]
  - DELIRIUM TREMENS [None]
  - DIABETES MELLITUS [None]
  - DYSGRAPHIA [None]
  - DYSPHEMIA [None]
  - FEELING ABNORMAL [None]
  - HYPERTENSION [None]
  - INCREASED APPETITE [None]
  - MALAISE [None]
  - MEMORY IMPAIRMENT [None]
  - TINNITUS [None]
  - VISUAL ACUITY REDUCED [None]
